FAERS Safety Report 4375067-X (Version None)
Quarter: 2004Q2

REPORT INFORMATION
  Report Type: 
  Country: None (occurrence: None)
  Receive Date: 20040603
  Receipt Date: 20040513
  Transmission Date: 20050107
  Serious: Yes (Hospitalization)
  Sender: FDA-Public Use
  Company Number: FR_040504111

PATIENT
  Age: 56 Year
  Sex: Female
  Weight: 93 kg

DRUGS (3)
  1. XIGRIS [Suspect]
     Indication: SEPTIC SHOCK
     Dosage: 182 MG OTHER
     Dates: start: 20040121, end: 20040123
  2. ADRENALIN IN OIL INJ [Concomitant]
  3. NORADRENALINE [Concomitant]

REACTIONS (2)
  - DIALYSIS [None]
  - RENAL FAILURE ACUTE [None]
